FAERS Safety Report 23632251 (Version 1)
Quarter: 2024Q1

REPORT INFORMATION
  Report Type: Spontaneous
  Country: US (occurrence: None)
  Receive Date: 20240313
  Receipt Date: 20240313
  Transmission Date: 20240409
  Serious: Yes (Hospitalization)
  Sender: FDA-Public Use
  Company Number: None

PATIENT
  Age: 66 Year
  Sex: Female

DRUGS (2)
  1. STELARA [Suspect]
     Active Substance: USTEKINUMAB
     Indication: Colitis ulcerative
     Dosage: OTHER FREQUENCY : EVERY 8 WEEKS;?
     Route: 058
     Dates: start: 202310
  2. ELIQUIS [Suspect]
     Active Substance: APIXABAN

REACTIONS (6)
  - Haematochezia [None]
  - Brain fog [None]
  - Pallor [None]
  - Gingival bleeding [None]
  - Therapy cessation [None]
  - Gastrointestinal disorder [None]

NARRATIVE: CASE EVENT DATE: 20240109
